FAERS Safety Report 9134831 (Version 1)
Quarter: 2013Q1

REPORT INFORMATION
  Report Type: Report from Study
  Country: CA (occurrence: CA)
  Receive Date: 20130304
  Receipt Date: 20130304
  Transmission Date: 20140127
  Serious: Yes (Other)
  Sender: FDA-Public Use
  Company Number: CA-JNJFOC-20130216411

PATIENT
  Age: 57 Year
  Sex: Male
  Weight: 96 kg

DRUGS (6)
  1. REMICADE [Suspect]
     Indication: COLITIS ULCERATIVE
     Dosage: WEEK 2
     Route: 042
     Dates: start: 20130131
  2. REMICADE [Suspect]
     Indication: COLITIS ULCERATIVE
     Dosage: LOADING DOSE
     Route: 042
     Dates: start: 20130118
  3. IMURAN [Concomitant]
     Route: 065
  4. PREDNISONE [Concomitant]
     Route: 065
  5. PANTOLOC [Concomitant]
     Route: 065
  6. CELEXA [Concomitant]
     Route: 065

REACTIONS (2)
  - Haematochezia [Unknown]
  - Frequent bowel movements [Unknown]
